FAERS Safety Report 4895178-X (Version None)
Quarter: 2006Q1

REPORT INFORMATION
  Report Type: 
  Country: None (occurrence: None)
  Receive Date: 20060125
  Receipt Date: 20050915
  Transmission Date: 20060701
  Serious: Yes (Death, Life-Threatening, Hospitalization)
  Sender: FDA-Public Use
  Company Number: FR_031103160

PATIENT
  Age: 81 Year
  Sex: Male

DRUGS (9)
  1. VANCOMYCIN [Suspect]
     Indication: STAPHYLOCOCCAL SEPSIS
     Dosage: 2 G DAY
     Dates: start: 20030101, end: 20030105
  2. ASPEGIC 1000 [Concomitant]
  3. ALLOPURINOL [Concomitant]
  4. ATORVASTATIN CALCIUM [Concomitant]
  5. SECTRAL [Concomitant]
  6. ACARBOSE [Concomitant]
  7. ACTRAPID (INSULIN) [Concomitant]
  8. BRICANYL [Concomitant]
  9. ATROVENT [Concomitant]

REACTIONS (3)
  - DIABETES MELLITUS INADEQUATE CONTROL [None]
  - HYPEROSMOLAR STATE [None]
  - PANCYTOPENIA [None]
